FAERS Safety Report 12777122 (Version 1)
Quarter: 2016Q3

REPORT INFORMATION
  Report Type: Report from Study
  Country: DE (occurrence: DE)
  Receive Date: 20160924
  Receipt Date: 20160924
  Transmission Date: 20161109
  Serious: Yes (Hospitalization)
  Sender: FDA-Public Use
  Company Number: US-ASTRAZENECA-2016SF01113

PATIENT
  Sex: Male

DRUGS (18)
  1. SYNAGIS [Suspect]
     Active Substance: PALIVIZUMAB
     Indication: PREMATURE BABY
     Dosage: 150 MG
     Route: 030
     Dates: start: 20081127, end: 20081127
  2. SYNAGIS [Suspect]
     Active Substance: PALIVIZUMAB
     Indication: ANTIVIRAL PROPHYLAXIS
     Dosage: 150 MG
     Route: 030
     Dates: start: 20081229, end: 20081229
  3. SYNAGIS [Suspect]
     Active Substance: PALIVIZUMAB
     Indication: BRONCHOPULMONARY DYSPLASIA
     Dosage: 150 MG
     Route: 030
     Dates: start: 20090403, end: 20090403
  4. SYNAGIS [Suspect]
     Active Substance: PALIVIZUMAB
     Indication: BRONCHOPULMONARY DYSPLASIA
     Dosage: 150 MG
     Route: 030
     Dates: start: 20081127, end: 20081127
  5. SYNAGIS [Suspect]
     Active Substance: PALIVIZUMAB
     Indication: ANTIVIRAL PROPHYLAXIS
     Dosage: 150 MG
     Route: 030
     Dates: start: 20090305, end: 20090305
  6. SYNAGIS [Suspect]
     Active Substance: PALIVIZUMAB
     Indication: PREMATURE BABY
     Dosage: 150 MG
     Route: 030
     Dates: start: 20090403, end: 20090403
  7. SYNAGIS [Suspect]
     Active Substance: PALIVIZUMAB
     Indication: ANTIVIRAL PROPHYLAXIS
     Dosage: 150 MG
     Route: 030
     Dates: start: 20081127, end: 20081127
  8. SYNAGIS [Suspect]
     Active Substance: PALIVIZUMAB
     Indication: BRONCHOPULMONARY DYSPLASIA
     Dosage: 150 MG
     Route: 030
     Dates: start: 20081229, end: 20081229
  9. SYNAGIS [Suspect]
     Active Substance: PALIVIZUMAB
     Indication: ANTIVIRAL PROPHYLAXIS
     Dosage: 150 MG
     Route: 030
     Dates: start: 20090403, end: 20090403
  10. SYNAGIS [Suspect]
     Active Substance: PALIVIZUMAB
     Indication: PREMATURE BABY
     Dosage: 150 MG
     Route: 030
     Dates: start: 20081030, end: 20081030
  11. SYNAGIS [Suspect]
     Active Substance: PALIVIZUMAB
     Indication: BRONCHOPULMONARY DYSPLASIA
     Dosage: 150 MG
     Route: 030
     Dates: start: 20090305, end: 20090305
  12. SYNAGIS [Suspect]
     Active Substance: PALIVIZUMAB
     Indication: PREMATURE BABY
     Dosage: 150 MG
     Route: 030
     Dates: start: 20081229, end: 20081229
  13. SYNAGIS [Suspect]
     Active Substance: PALIVIZUMAB
     Indication: PREMATURE BABY
     Dosage: 150 MG
     Route: 030
     Dates: start: 20090305, end: 20090305
  14. SYNAGIS [Suspect]
     Active Substance: PALIVIZUMAB
     Indication: ANTIVIRAL PROPHYLAXIS
     Dosage: 150 MG
     Route: 030
     Dates: start: 20081030, end: 20081030
  15. SYNAGIS [Suspect]
     Active Substance: PALIVIZUMAB
     Indication: ANTIVIRAL PROPHYLAXIS
     Dosage: 150 MG
     Route: 030
     Dates: start: 20090202, end: 20090202
  16. SYNAGIS [Suspect]
     Active Substance: PALIVIZUMAB
     Indication: PREMATURE BABY
     Dosage: 150 MG
     Route: 030
     Dates: start: 20090202, end: 20090202
  17. SYNAGIS [Suspect]
     Active Substance: PALIVIZUMAB
     Indication: BRONCHOPULMONARY DYSPLASIA
     Dosage: 150 MG
     Route: 030
     Dates: start: 20081030, end: 20081030
  18. SYNAGIS [Suspect]
     Active Substance: PALIVIZUMAB
     Indication: BRONCHOPULMONARY DYSPLASIA
     Dosage: 150 MG
     Route: 030
     Dates: start: 20090202, end: 20090202

REACTIONS (3)
  - Arthritis [Recovering/Resolving]
  - Localised infection [Recovering/Resolving]
  - Osteomyelitis [Recovering/Resolving]
